FAERS Safety Report 13183882 (Version 3)
Quarter: 2017Q2

REPORT INFORMATION
  Report Type: Spontaneous
  Country: US (occurrence: US)
  Receive Date: 20170203
  Receipt Date: 20170512
  Transmission Date: 20170830
  Serious: No
  Sender: FDA-Public Use
  Company Number: US-009507513-1701USA008335

PATIENT
  Age: 66 Year
  Sex: Male

DRUGS (6)
  1. QUETIAPINE FUMARATE. [Suspect]
     Active Substance: QUETIAPINE FUMARATE
     Indication: PARKINSONISM
     Dosage: UNK
  2. ALPRAZOLAM. [Concomitant]
     Active Substance: ALPRAZOLAM
     Dosage: 0.5 DF, TID (0.5-MG HALF TABLET 3 TIMES DAILY AS NEEDED)
  3. REMERON [Concomitant]
     Active Substance: MIRTAZAPINE
  4. SINEMET [Suspect]
     Active Substance: CARBIDOPA\LEVODOPA
     Indication: PARKINSONISM
     Dosage: UNK
     Route: 048
  5. FLUNISOLIDE. [Concomitant]
     Active Substance: FLUNISOLIDE
     Dosage: NASAL SOLUTION
     Route: 045
  6. BUDESONIDE. [Concomitant]
     Active Substance: BUDESONIDE
     Dosage: INHALATION SUSPENSION
     Route: 055

REACTIONS (4)
  - Agitation [Recovering/Resolving]
  - Hallucination [Recovering/Resolving]
  - Personality change [Recovering/Resolving]
  - Aggression [Recovering/Resolving]
